FAERS Safety Report 5613840-8 (Version None)
Quarter: 2008Q1

REPORT INFORMATION
  Report Type: 
  Country: None (occurrence: None)
  Receive Date: 20080205
  Receipt Date: 20080128
  Transmission Date: 20080703
  Serious: Yes (Other)
  Sender: FDA-Public Use
  Company Number: US-ASTRAZENECA-2008UW01923

PATIENT
  Sex: Female

DRUGS (3)
  1. RHINOCORT [Suspect]
     Indication: RHINITIS ALLERGIC
     Dosage: 2 SPRAYS IN EACH NOSTRIL
     Route: 045
  2. PULMICORT RESPULES [Concomitant]
     Route: 055
  3. PULMICORT [Concomitant]
     Route: 055

REACTIONS (1)
  - CATARACT [None]
